FAERS Safety Report 5123485-4 (Version None)
Quarter: 2006Q4

REPORT INFORMATION
  Report Type: 
  Country: None (occurrence: None)
  Receive Date: 20061009
  Receipt Date: 20061002
  Transmission Date: 20070319
  Serious: Yes (Hospitalization, Disabling)
  Sender: FDA-Public Use
  Company Number: GB-MERCK-0610GBR00024

PATIENT
  Age: 82 Year

DRUGS (4)
  1. FOSAMAX [Suspect]
     Route: 048
     Dates: start: 20060721, end: 20060810
  2. CALCIUM CARBONATE AND CHOLECALCIFEROL [Concomitant]
     Route: 048
     Dates: end: 20060810
  3. ACETAMINOPHEN AND CODEINE PHOSPHATE [Concomitant]
     Route: 048
  4. SENNA [Concomitant]
     Route: 048

REACTIONS (2)
  - MOUTH ULCERATION [None]
  - STOMATITIS [None]
